FAERS Safety Report 8027986-0 (Version None)
Quarter: 2011Q4

REPORT INFORMATION
  Report Type: 
  Country: None (occurrence: None)
  Receive Date: 20111130
  Receipt Date: 20110815
  Transmission Date: 20120403
  Serious: Yes (Hospitalization)
  Sender: FDA-Public Use
  Company Number: US200906005671

PATIENT
  Age: 37 Year
  Sex: Female
  Weight: 122.4 kg

DRUGS (6)
  1. EXENATIDE UNK STRENGTH PEN, DISPOSABLE DEVICE (EXENATIDE PEN (UNKNOWN [Concomitant]
  2. LANTUS [Concomitant]
  3. ACTOS (PIOGILTAZONE UNKNOWN FORMULATION) [Concomitant]
  4. METFORMIN HCL [Concomitant]
  5. BYETTA [Suspect]
     Dates: start: 20070503, end: 20070603
  6. BYETTA [Suspect]
     Dates: start: 20071003, end: 20071103

REACTIONS (3)
  - PANCREATITIS ACUTE [None]
  - OFF LABEL USE [None]
  - RENAL INJURY [None]
